FAERS Safety Report 6247158-X (Version None)
Quarter: 2009Q2

REPORT INFORMATION
  Report Type: 
  Country: None (occurrence: None)
  Receive Date: 20090624
  Receipt Date: 20090624
  Transmission Date: 20091009
  Serious: Yes (Life-Threatening)
  Sender: FDA-Public Use
  Company Number: None

PATIENT
  Age: 42 Year
  Sex: Male
  Weight: 68 kg

DRUGS (15)
  1. MORPHINE [Suspect]
     Indication: PAIN
     Dosage: 2 MG IV Q2 PRN
     Route: 042
     Dates: start: 20090322, end: 20090323
  2. MORPHINE [Suspect]
     Indication: PAIN
     Dosage: 0/2/15
     Dates: start: 20090322, end: 20090323
  3. APAP TAB [Concomitant]
  4. ASPIRIN [Concomitant]
  5. BISACODYL [Concomitant]
  6. CEFAZOLIN [Concomitant]
  7. DOCUSATE [Concomitant]
  8. LORAZEPAM [Concomitant]
  9. MAALOX [Concomitant]
  10. MVI WITH MINERALS [Concomitant]
  11. OXAZEPAM [Concomitant]
  12. SENNA [Concomitant]
  13. TEMAZEPAM [Concomitant]
  14. THIAMINE HCL [Concomitant]
  15. DIPHENHYDRAMINE HCL [Concomitant]

REACTIONS (1)
  - UNRESPONSIVE TO STIMULI [None]
